FAERS Safety Report 11563807 (Version 1)
Quarter: 2015Q3

REPORT INFORMATION
  Report Type: Spontaneous
  Country: US (occurrence: US)
  Receive Date: 20150916
  Receipt Date: 20150916
  Transmission Date: 20151125
  Serious: No
  Sender: FDA-Public Use
  Company Number: US-ELI_LILLY_AND_COMPANY-US200902003692

PATIENT
  Sex: Male

DRUGS (2)
  1. FORTEO [Suspect]
     Active Substance: TERIPARATIDE
     Indication: OSTEOPOROSIS
     Dosage: UNK, UNK
     Dates: start: 20090212, end: 20090216
  2. FORTEO [Suspect]
     Active Substance: TERIPARATIDE
     Dosage: UNK, QOD
     Dates: start: 2009

REACTIONS (14)
  - Decreased appetite [Unknown]
  - Pain in extremity [Recovered/Resolved]
  - Dizziness [Recovered/Resolved]
  - Confusional state [Unknown]
  - Spinal fracture [Not Recovered/Not Resolved]
  - Abdominal discomfort [Recovered/Resolved]
  - Asthenia [Unknown]
  - Back pain [Unknown]
  - Mobility decreased [Unknown]
  - Fatigue [Unknown]
  - Dyspepsia [Unknown]
  - Gastrointestinal disorder [Unknown]
  - Malaise [Not Recovered/Not Resolved]
  - Arthralgia [Unknown]

NARRATIVE: CASE EVENT DATE: 200902
